FAERS Safety Report 9325624 (Version 1)
Quarter: 2013Q2

REPORT INFORMATION
  Report Type: Spontaneous
  Country: BR (occurrence: BR)
  Receive Date: 20130604
  Receipt Date: 20130604
  Transmission Date: 20140414
  Serious: Yes (Other)
  Sender: FDA-Public Use
  Company Number: BR-SANOFI-AVENTIS-2013SA053223

PATIENT
  Age: 70 Year
  Sex: Female
  Weight: 70 kg

DRUGS (8)
  1. LANTUS [Suspect]
     Indication: TYPE 2 DIABETES MELLITUS
     Dosage: ALTERNATING USE OF LANTUS SOLOSTAR AND LANTUS CLIKSTAR(BLUE)
     Route: 058
     Dates: start: 2005
  2. CLIKSTAR [Concomitant]
     Indication: DEVICE THERAPY
     Dates: start: 2005
  3. SOLOSTAR [Concomitant]
     Indication: DEVICE THERAPY
  4. CARMELLOSE SODIUM [Concomitant]
     Indication: DISCOMFORT
     Dosage: DROP
     Dates: start: 2009
  5. SYSTANE [Concomitant]
     Indication: DISCOMFORT
     Dosage: DROP
     Dates: start: 2009
  6. ADALAT [Concomitant]
     Indication: HYPERTENSION
     Route: 048
     Dates: start: 2007
  7. LOSARTAN [Concomitant]
     Indication: HYPERTENSION
     Route: 048
     Dates: start: 2007
  8. DIMEFOR [Concomitant]
     Indication: DIABETES MELLITUS
     Route: 048
     Dates: start: 2008

REACTIONS (4)
  - Eye haemorrhage [Recovered/Resolved with Sequelae]
  - Dry eye [Not Recovered/Not Resolved]
  - Vision blurred [Not Recovered/Not Resolved]
  - Visual impairment [Not Recovered/Not Resolved]
